FAERS Safety Report 7293670-4 (Version None)
Quarter: 2011Q1

REPORT INFORMATION
  Report Type: 
  Country: None (occurrence: None)
  Receive Date: 20110215
  Receipt Date: 20110210
  Transmission Date: 20110831
  Serious: Yes (Death)
  Sender: FDA-Public Use
  Company Number: B0696138A

PATIENT
  Sex: Female
  Weight: 60 kg

DRUGS (2)
  1. ZANAMIVIR [Suspect]
     Route: 042
  2. AMPHOTERICIN B [Concomitant]

REACTIONS (3)
  - MALAISE [None]
  - MECHANICAL VENTILATION [None]
  - DEATH [None]
